FAERS Safety Report 16840292 (Version 1)
Quarter: 2019Q3

REPORT INFORMATION
  Report Type: Spontaneous
  Country: US (occurrence: US)
  Receive Date: 20190923
  Receipt Date: 20190923
  Transmission Date: 20191005
  Serious: Yes (Hospitalization, Other)
  Sender: FDA-Public Use
  Company Number: US-009507513-1909USA006137

PATIENT
  Age: 77 Year
  Sex: Male
  Weight: 93.42 kg

DRUGS (3)
  1. PRINIVIL [Suspect]
     Active Substance: LISINOPRIL
     Indication: HYPERTENSION
     Dosage: 10 MILLIGRAM, QD
     Route: 048
     Dates: start: 1999, end: 20190731
  2. TERAZOSIN [Concomitant]
     Active Substance: TERAZOSIN HYDROCHLORIDE
     Dosage: UNK, QD
     Route: 048
     Dates: start: 1999
  3. PRINIVIL [Suspect]
     Active Substance: LISINOPRIL
     Dosage: UNK
     Route: 048
     Dates: start: 20190819

REACTIONS (46)
  - Hypoxia [Unknown]
  - Sleep apnoea syndrome [Unknown]
  - Hypoacusis [Unknown]
  - Depression [Unknown]
  - Dyspepsia [Unknown]
  - Blood creatinine increased [Unknown]
  - Prostate cancer [Unknown]
  - Metastases to bone [Unknown]
  - Benign prostatic hyperplasia [Unknown]
  - Angiocardiogram [Unknown]
  - Seasonal allergy [Unknown]
  - Chronic obstructive pulmonary disease [Unknown]
  - Blood creatinine decreased [Unknown]
  - Cough [Recovering/Resolving]
  - Anxiety [Unknown]
  - Hyperlipidaemia [Unknown]
  - Cancer pain [Unknown]
  - Troponin increased [Unknown]
  - Bronchial hyperreactivity [Unknown]
  - Catheterisation cardiac [Unknown]
  - Feeding disorder [Unknown]
  - Insomnia [Unknown]
  - Arthritis [Unknown]
  - Alopecia [Unknown]
  - Hypotension [Recovered/Resolved]
  - Neuropathy peripheral [Unknown]
  - Pulmonary embolism [Unknown]
  - Weight decreased [Unknown]
  - Feeling abnormal [Unknown]
  - Dyspnoea [Unknown]
  - Tachycardia [Recovered/Resolved]
  - Gastrointestinal stromal tumour [Unknown]
  - Hiatus hernia [Unknown]
  - Dysphonia [Unknown]
  - Fatigue [Unknown]
  - Nausea [Unknown]
  - Cough [Unknown]
  - Sleep disorder [Unknown]
  - Hypovolaemia [Unknown]
  - Decreased appetite [Unknown]
  - Gastrooesophageal reflux disease [Unknown]
  - Pleural effusion [Unknown]
  - Dyspnoea [Unknown]
  - Bronchospasm [Unknown]
  - Acute kidney injury [Unknown]
  - Hyponatraemia [Unknown]

NARRATIVE: CASE EVENT DATE: 1999
